FAERS Safety Report 22638016 (Version 1)
Quarter: 2023Q2

REPORT INFORMATION
  Report Type: Spontaneous
  Country: DZ (occurrence: DZ)
  Receive Date: 20230626
  Receipt Date: 20230626
  Transmission Date: 20230722
  Serious: Yes (Death, Other)
  Sender: FDA-Public Use
  Company Number: DZ-SA-SAC20230605000667

PATIENT
  Age: 54 Month
  Sex: Female

DRUGS (1)
  1. ALDURAZYME [Suspect]
     Active Substance: LARONIDASE
     Indication: Mucopolysaccharidosis I
     Dosage: UNK
     Route: 065

REACTIONS (3)
  - Cardiac disorder [Fatal]
  - Mitral valve incompetence [Fatal]
  - Pneumonia [Fatal]
